FAERS Safety Report 9582496 (Version 1)
Quarter: 2013Q4

REPORT INFORMATION
  Report Type: Spontaneous
  Country: NZ (occurrence: NZ)
  Receive Date: 20131002
  Receipt Date: 20131002
  Transmission Date: 20140711
  Serious: Yes (Disabling)
  Sender: FDA-Public Use
  Company Number: NZ-MYLANLABS-2013S1021437

PATIENT
  Age: 82 Year
  Sex: Female

DRUGS (5)
  1. SIMVASTATIN [Suspect]
     Dosage: 80MG
     Route: 065
  2. LISINOPRIL [Concomitant]
     Route: 065
  3. METOPROLOL [Concomitant]
     Route: 065
  4. HYDROCHLOROTHIAZIDE [Concomitant]
     Route: 065
  5. NIFEDIPINE [Concomitant]
     Route: 065

REACTIONS (3)
  - Back pain [Recovering/Resolving]
  - Abasia [Unknown]
  - Insomnia [Unknown]
